FAERS Safety Report 17604965 (Version 1)
Quarter: 2020Q1

REPORT INFORMATION
  Report Type: Spontaneous
  Country: US (occurrence: US)
  Receive Date: 20200331
  Receipt Date: 20200331
  Transmission Date: 20200409
  Serious: Yes (Life-Threatening)
  Sender: FDA-Public Use
  Company Number: US-AMNEAL PHARMACEUTICALS-2020-AMRX-00935

PATIENT
  Age: 35 Year
  Sex: Female

DRUGS (5)
  1. ADRENACLICK [Suspect]
     Active Substance: EPINEPHRINE
     Indication: ANAPHYLACTIC REACTION
     Dosage: UNK
     Route: 030
  2. DIPHENHYDRAMINE. [Concomitant]
     Active Substance: DIPHENHYDRAMINE
     Indication: ANAPHYLACTIC REACTION
     Dosage: UNK
     Route: 065
  3. METHYLPREDNISOLONE. [Concomitant]
     Active Substance: METHYLPREDNISOLONE
     Indication: ANAPHYLACTIC REACTION
     Dosage: UNK
     Route: 042
  4. FAMOTIDINE. [Concomitant]
     Active Substance: FAMOTIDINE
     Indication: ANAPHYLACTIC REACTION
     Dosage: UNK
     Route: 065
  5. NORMAL SALINE [Concomitant]
     Active Substance: SODIUM CHLORIDE
     Indication: ANAPHYLACTIC REACTION
     Dosage: 1500 CC BOLUS
     Route: 040

REACTIONS (1)
  - Acute coronary syndrome [Unknown]
